FAERS Safety Report 18314128 (Version 1)
Quarter: 2020Q3

REPORT INFORMATION
  Report Type: Report from Study
  Country: None (occurrence: US)
  Receive Date: 20200926
  Receipt Date: 20200926
  Transmission Date: 20201103
  Serious: Yes (Death, Hospitalization, Other)
  Sender: FDA-Public Use
  Company Number: US-ABBVIE-20K-163-3578777-00

PATIENT
  Age: 72 Year
  Sex: Female

DRUGS (1)
  1. IMBRUVICA [Suspect]
     Active Substance: IBRUTINIB
     Indication: CHRONIC LYMPHOCYTIC LEUKAEMIA
     Route: 048
     Dates: start: 20190315

REACTIONS (9)
  - Cognitive disorder [Unknown]
  - Arrhythmia [Unknown]
  - Heart rate increased [Unknown]
  - Dysphagia [Unknown]
  - Death [Fatal]
  - Swelling [Unknown]
  - Cardiac arrest [Fatal]
  - Hip fracture [Recovering/Resolving]
  - Dementia [Unknown]

NARRATIVE: CASE EVENT DATE: 202008
